FAERS Safety Report 14987083 (Version 1)
Quarter: 2018Q2

REPORT INFORMATION
  Report Type: Spontaneous
  Country: DE (occurrence: DE)
  Receive Date: 20180608
  Receipt Date: 20180608
  Transmission Date: 20180711
  Serious: Yes (Hospitalization)
  Sender: FDA-Public Use
  Company Number: DE-TEVA-2018-DE-902977

PATIENT
  Age: 90 Year
  Sex: Male
  Weight: 90 kg

DRUGS (6)
  1. TORASEMIDE [Suspect]
     Active Substance: TORSEMIDE
     Dosage: 20 MG, 0.5-0.5-0-0
     Route: 048
  2. METOPROLOL. [Suspect]
     Active Substance: METOPROLOL
     Dosage: 100 MG, 0.5-0-0-0
     Route: 048
  3. ENALAPRIL [Suspect]
     Active Substance: ENALAPRIL
     Dosage: 5 MG, 0.5-0-0.5-0
     Route: 048
  4. SPIRONOLACTONE. [Suspect]
     Active Substance: SPIRONOLACTONE
     Dosage: 50 MG, 0.5-0-0-0
     Route: 048
  5. ACETYLSALICYLIC ACID [Concomitant]
     Active Substance: ASPIRIN
     Dosage: 100 MG, 1-0-0-0
     Route: 048
  6. ENALAPRIL [Suspect]
     Active Substance: ENALAPRIL
     Dosage: 1000 MG, 0-0-1-0
     Route: 048

REACTIONS (5)
  - Drug prescribing error [Unknown]
  - Arrhythmia [Unknown]
  - Syncope [Unknown]
  - Bundle branch block right [Unknown]
  - Dyspnoea [Unknown]
